FAERS Safety Report 6446301-7 (Version None)
Quarter: 2009Q4

REPORT INFORMATION
  Report Type: 
  Country: None (occurrence: None)
  Receive Date: 20091119
  Receipt Date: 20091109
  Transmission Date: 20100525
  Serious: Yes (Other)
  Sender: FDA-Public Use
  Company Number: US-JNJFOC-20091005167

PATIENT
  Sex: Female
  Weight: 81.19 kg

DRUGS (10)
  1. REMICADE [Suspect]
     Route: 042
     Dates: start: 20060706, end: 20080201
  2. REMICADE [Suspect]
     Indication: CROHN'S DISEASE
     Route: 042
     Dates: start: 20060706, end: 20080201
  3. ZONEGRAN [Concomitant]
  4. CLONAZEPAM [Concomitant]
  5. PROTONIX [Concomitant]
  6. CELEXA [Concomitant]
  7. CALCIUM [Concomitant]
  8. PROTONIX [Concomitant]
  9. MULTI-VITAMINS [Concomitant]
  10. MIRALAX [Concomitant]

REACTIONS (4)
  - DEPRESSION [None]
  - DEPRESSION SUICIDAL [None]
  - FAECAL INCONTINENCE [None]
  - URINARY INCONTINENCE [None]
